FAERS Safety Report 4473974-0 (Version None)
Quarter: 2004Q4

REPORT INFORMATION
  Report Type: 
  Country: None (occurrence: None)
  Receive Date: 20041008
  Receipt Date: 20040922
  Transmission Date: 20050328
  Serious: Yes (Death, Congenital Anomaly)
  Sender: FDA-Public Use
  Company Number: US_0409105979

PATIENT

DRUGS (2)
  1. INSULIN [Suspect]
  2. MULTIVITAMIN [Concomitant]

REACTIONS (3)
  - HYDROPS FOETALIS [None]
  - MATERNAL DRUGS AFFECTING FOETUS [None]
  - STILLBIRTH [None]
